FAERS Safety Report 6283503-7 (Version None)
Quarter: 2009Q3

REPORT INFORMATION
  Report Type: 
  Country: None (occurrence: None)
  Receive Date: 20090721
  Receipt Date: 20090721
  Transmission Date: 20100115
  Serious: No
  Sender: FDA-Public Use
  Company Number: None

PATIENT
  Age: 56 Year
  Sex: Female
  Weight: 58.9676 kg

DRUGS (2)
  1. ZICAM NASAL SPRAY [Suspect]
     Indication: NASOPHARYNGITIS
     Dosage: 1 SPRAY/NOSTRIL BID NASAL
     Route: 045
     Dates: start: 20060101, end: 20081230
  2. ZICAM ORAL GEL [Suspect]
     Dosage: 1 SWAB ORAL MUCOSAL BID PO
     Route: 048

REACTIONS (2)
  - AGEUSIA [None]
  - ANOSMIA [None]
